FAERS Safety Report 9456901 (Version 1)
Quarter: 2013Q3

REPORT INFORMATION
  Report Type: Spontaneous
  Country: CA (occurrence: CA)
  Receive Date: 20130813
  Receipt Date: 20130813
  Transmission Date: 20140515
  Serious: Yes (Other)
  Sender: FDA-Public Use
  Company Number: CA-SANOFI-AVENTIS-2013SA079838

PATIENT
  Age: 79 Year
  Sex: Male

DRUGS (15)
  1. PLAVIX [Suspect]
     Indication: PRODUCT USED FOR UNKNOWN INDICATION
     Route: 065
  2. ASPIRIN [Suspect]
     Indication: PRODUCT USED FOR UNKNOWN INDICATION
     Route: 065
  3. ZELBORAF [Suspect]
     Indication: PRODUCT USED FOR UNKNOWN INDICATION
     Route: 048
  4. ALL OTHER THERAPEUTIC PRODUCTS [Concomitant]
     Route: 065
  5. TAMSULOSIN HYDROCHLORIDE [Concomitant]
     Route: 065
  6. INDAPAMIDE [Concomitant]
     Route: 065
  7. LIPITOR [Concomitant]
     Route: 065
  8. METOPROLOL [Concomitant]
     Route: 065
  9. MULTIVITAMINS [Concomitant]
     Route: 065
  10. PARIET [Concomitant]
     Route: 065
  11. SAW PALMETTO [Concomitant]
     Route: 065
  12. TYLENOL [Concomitant]
     Route: 065
  13. VALIUM [Concomitant]
     Route: 065
  14. VITAMIN A [Concomitant]
     Route: 065
  15. VITAMIN C [Concomitant]
     Route: 065

REACTIONS (24)
  - Actinic keratosis [Unknown]
  - Alopecia [Unknown]
  - Asthenia [Unknown]
  - Dyspnoea [Unknown]
  - Dyspnoea exertional [Unknown]
  - Gait disturbance [Unknown]
  - General physical health deterioration [Unknown]
  - Gingival bleeding [Unknown]
  - Haemorrhage [Unknown]
  - Keratoacanthoma [Unknown]
  - Malignant melanoma [Unknown]
  - Mass [Unknown]
  - Memory impairment [Unknown]
  - Mental disorder [Unknown]
  - Neoplasm progression [Unknown]
  - Rash [Unknown]
  - Rash erythematous [Unknown]
  - Somnolence [Unknown]
  - Squamous cell carcinoma [Unknown]
  - Suicidal ideation [Unknown]
  - Sunburn [Unknown]
  - Urticaria [Unknown]
  - Vomiting [Unknown]
  - Fatigue [Unknown]
